FAERS Safety Report 25002946 (Version 3)
Quarter: 2025Q1

REPORT INFORMATION
  Report Type: Spontaneous
  Country: ZA (occurrence: ZA)
  Receive Date: 20250224
  Receipt Date: 20250320
  Transmission Date: 20250408
  Serious: Yes (Hospitalization, Other)
  Sender: CSL BEHRING
  Company Number: ZA-ROCHE-10000202870

PATIENT
  Age: 52 Year
  Sex: Female

DRUGS (1)
  1. MIRCERA [Suspect]
     Active Substance: METHOXY POLYETHYLENE GLYCOL-EPOETIN BETA
     Indication: Product used for unknown indication
     Route: 065

REACTIONS (6)
  - Foot amputation [Unknown]
  - Fluid retention [Unknown]
  - Dyspnoea [Unknown]
  - Insomnia [Unknown]
  - Renal disorder [Unknown]
  - Infection [Unknown]
